FAERS Safety Report 11581290 (Version 1)
Quarter: 2015Q4

REPORT INFORMATION
  Report Type: Spontaneous
  Country: US (occurrence: US)
  Receive Date: 20151001
  Receipt Date: 20151001
  Transmission Date: 20160304
  Serious: Yes (Hospitalization)
  Sender: FDA-Public Use
  Company Number: US-ROCHE-701126

PATIENT
  Age: 55 Year
  Sex: Male

DRUGS (4)
  1. RIBAVIRIN. [Suspect]
     Active Substance: RIBAVIRIN
     Indication: HEPATITIS C
     Dosage: DIVIDED DOSES.
     Route: 065
     Dates: start: 20100414, end: 20100511
  2. RIBAVIRIN. [Suspect]
     Active Substance: RIBAVIRIN
     Route: 065
  3. PEGASYS [Suspect]
     Active Substance: PEGINTERFERON ALFA-2A
     Indication: HEPATITIS C
     Dosage: FORM: PRE-FILLED SYRINGE.
     Route: 065
     Dates: start: 20100414, end: 20100511
  4. PEGASYS [Suspect]
     Active Substance: PEGINTERFERON ALFA-2A
     Route: 065
     Dates: start: 20100518, end: 20100518

REACTIONS (4)
  - Hyperhidrosis [Unknown]
  - Bronchitis [Recovered/Resolved]
  - Pulmonary thrombosis [Unknown]
  - Pyrexia [Unknown]

NARRATIVE: CASE EVENT DATE: 20100421
